FAERS Safety Report 22826790 (Version 3)
Quarter: 2023Q4

REPORT INFORMATION
  Report Type: Spontaneous
  Country: US (occurrence: US)
  Receive Date: 20230816
  Receipt Date: 20231201
  Transmission Date: 20240110
  Serious: Yes (Other)
  Sender: FDA-Public Use
  Company Number: US-BAYER-2023A114442

PATIENT
  Age: 31 Year
  Sex: Male

DRUGS (1)
  1. JIVI [Suspect]
     Active Substance: DAMOCTOCOG ALFA PEGOL
     Indication: Factor VIII deficiency
     Dosage: 2800 IU, BIW
     Route: 042
     Dates: start: 202303

REACTIONS (1)
  - Inflammation [None]

NARRATIVE: CASE EVENT DATE: 20230707
